FAERS Safety Report 19865827 (Version 1)
Quarter: 2021Q3

REPORT INFORMATION
  Report Type: Spontaneous
  Country: VN (occurrence: VN)
  Receive Date: 20210922
  Receipt Date: 20210922
  Transmission Date: 20211014
  Serious: Yes (Other)
  Sender: FDA-Public Use
  Company Number: VN-SUN PHARMACEUTICAL INDUSTRIES LTD-2021R1-312012

PATIENT
  Age: 32 Year
  Sex: Male

DRUGS (2)
  1. CLOPIDOGREL [Suspect]
     Active Substance: CLOPIDOGREL BISULFATE
     Indication: BASILAR ARTERY OCCLUSION
     Dosage: UNK
     Route: 065
  2. ASPIRIN. [Suspect]
     Active Substance: ASPIRIN
     Indication: BASILAR ARTERY OCCLUSION
     Dosage: UNK
     Route: 065

REACTIONS (1)
  - Reocclusion [Unknown]
